FAERS Safety Report 7486987-1 (Version None)
Quarter: 2011Q2

REPORT INFORMATION
  Report Type: 
  Country: None (occurrence: None)
  Receive Date: 20110517
  Receipt Date: 20110506
  Transmission Date: 20111010
  Serious: Yes (Other)
  Sender: FDA-Public Use
  Company Number: US-BAYER-2011-038492

PATIENT
  Age: 89 Year
  Sex: Male
  Weight: 78 kg

DRUGS (23)
  1. ACETAMINOPHEN [Interacting]
     Dosage: 1000 MG, QID, BEFORE 5TH BCG INSTILLATION
     Route: 048
     Dates: start: 20091101
  2. TESTOSTERONE [Concomitant]
     Route: 062
  3. DIPHENHYDRAMINE HYDROCHLORIDE [Concomitant]
     Dosage: 25 MG, PRN, AT BEDTIME
  4. MOXIFLOXACIN [Interacting]
     Dosage: 400 MG, ONCE, BEFORE COURSE 5 OF BCG INSTILLATIONS
     Route: 048
     Dates: start: 20091101
  5. MOXIFLOXACIN [Interacting]
     Dosage: 400 MG, ONCE, BEFORE COURSE 6 OF BCG INSTILLATIONS
     Route: 048
     Dates: start: 20091101
  6. ACETAMINOPHEN [Interacting]
     Dosage: 1000 MG, TID, ON DAY OF 3RD BCG INSTILLATION
     Route: 048
     Dates: start: 20091110
  7. SERTRALINE HYDROCHLORIDE [Concomitant]
     Dosage: DAILY DOSE 100 MG
  8. MOXIFLOXACIN [Interacting]
     Dosage: 400 MG, ONCE, BEFORE COURSE 4 OF BCG INSTILLATIONS
     Route: 048
     Dates: start: 20091101
  9. ACETAMINOPHEN [Interacting]
     Dosage: 1000 MG, QID, BEFORE 4TH BCG INSTILLATION
     Route: 048
     Dates: start: 20091101
  10. TICE BCG [Concomitant]
     Dosage: UNK UNK, OW, COURSE 4
     Route: 043
     Dates: start: 20091116
  11. VITAMIN D [Concomitant]
     Indication: SUPPLEMENTATION THERAPY
  12. WARFARIN SODIUM [Interacting]
     Dosage: 3 MG, QD, ON MONDAY AND THURSDAY
     Route: 048
  13. TICE BCG [Concomitant]
     Dosage: UNK UNK, OW, COURSE 1
     Route: 043
  14. TICE BCG [Concomitant]
     Dosage: UNK UNK, OW, COURSE 5
     Route: 043
     Dates: start: 20091123
  15. OMEPRAZOLE [Concomitant]
     Dosage: DAILY DOSE 20 MG
  16. ACETAMINOPHEN [Interacting]
     Dosage: 1000 MG, QID, BEFORE 6TH BCG INSTILLATION
     Route: 048
     Dates: start: 20091130
  17. ATORVASTATIN [Concomitant]
     Dosage: DAILY DOSE 10 MG
  18. ACETAMINOPHEN [Interacting]
     Indication: PROPHYLAXIS
     Dosage: 1000 MG, QID, BEFORE 3RD BCG INSTILLATION
     Route: 048
     Dates: start: 20091109
  19. MOXIFLOXACIN [Suspect]
     Indication: PROPHYLAXIS
     Dosage: 400 MG, ONCE, BEFORE COURSE 3 OF BCG INSTILLATIONS
     Route: 048
     Dates: start: 20091101
  20. WARFARIN SODIUM [Interacting]
     Indication: EMBOLISM VENOUS
     Dosage: 3 MG, QD, ON 5 DAYS PER WEEK
     Route: 048
  21. TICE BCG [Concomitant]
     Dosage: UNK UNK, OW, COURSE 3
     Route: 043
     Dates: start: 20091110
  22. TICE BCG [Concomitant]
     Dosage: UNK UNK, OW, COURSE 6
     Route: 043
     Dates: start: 20091130
  23. TICE BCG [Concomitant]
     Dosage: UNK UNK, OW, COURSE 2
     Route: 043

REACTIONS (2)
  - INTERNATIONAL NORMALISED RATIO INCREASED [None]
  - ANTICOAGULATION DRUG LEVEL ABOVE THERAPEUTIC [None]
